FAERS Safety Report 16719473 (Version 1)
Quarter: 2019Q3

REPORT INFORMATION
  Report Type: Spontaneous
  Country: US (occurrence: US)
  Receive Date: 20190702
  Receipt Date: 20190702
  Transmission Date: 20191005
  Serious: Yes (Hospitalization)
  Sender: FDA-Public Use
  Company Number: None

PATIENT
  Age: 60 Year
  Sex: Female

DRUGS (1)
  1. COPAXONE [Suspect]
     Active Substance: GLATIRAMER ACETATE
     Indication: MULTIPLE SCLEROSIS
     Route: 058
     Dates: start: 201803

REACTIONS (9)
  - Vomiting [None]
  - Therapy cessation [None]
  - Back pain [None]
  - Musculoskeletal pain [None]
  - Dyspnoea [None]
  - Screaming [None]
  - Throat tightness [None]
  - Feeling abnormal [None]
  - Pain in extremity [None]

NARRATIVE: CASE EVENT DATE: 20190626
